FAERS Safety Report 25480436 (Version 2)
Quarter: 2025Q2

REPORT INFORMATION
  Report Type: Spontaneous
  Country: US (occurrence: US)
  Receive Date: 20250625
  Receipt Date: 20250630
  Transmission Date: 20250717
  Serious: No
  Sender: PFIZER
  Company Number: US-PFIZER INC-PV202500075535

PATIENT
  Age: 38 Year
  Sex: Male

DRUGS (3)
  1. SOMAVERT [Suspect]
     Active Substance: PEGVISOMANT
     Indication: Acromegaly
     Dosage: 15 MG, DAILY
     Route: 058
     Dates: start: 202403
  2. CABERGOLINE [Concomitant]
     Active Substance: CABERGOLINE
  3. MYCAPSSA [Concomitant]
     Active Substance: OCTREOTIDE

REACTIONS (4)
  - Injection site pain [Unknown]
  - Injection site haemorrhage [Unknown]
  - Nausea [Unknown]
  - Diarrhoea [Unknown]
